FAERS Safety Report 25838073 (Version 1)
Quarter: 2025Q3

REPORT INFORMATION
  Report Type: Spontaneous
  Country: US (occurrence: None)
  Receive Date: 20250921
  Receipt Date: 20250921
  Transmission Date: 20251021
  Serious: Yes (Life-Threatening, Other)
  Sender: FDA-CTU
  Company Number: None

PATIENT
  Age: 36 Year
  Sex: Male
  Weight: 114.76 kg

DRUGS (8)
  1. SUPPRELIN LA [Suspect]
     Active Substance: HISTRELIN ACETATE
     Indication: Drug therapy
  2. XTANDI [Suspect]
     Active Substance: ENZALUTAMIDE
  3. TESTOSTERONE [Suspect]
     Active Substance: TESTOSTERONE
  4. TESTOSTERONE [Suspect]
     Active Substance: TESTOSTERONE
  5. Buprenorphine inhaler [Concomitant]
  6. OMEPRAZOLE [Concomitant]
     Active Substance: OMEPRAZOLE
  7. BENADRYL [Concomitant]
     Active Substance: DIPHENHYDRAMINE HYDROCHLORIDE
  8. TYLENOL [Concomitant]
     Active Substance: ACETAMINOPHEN

REACTIONS (15)
  - Legal problem [None]
  - Aggression [None]
  - Therapy cessation [None]
  - Agitation [None]
  - Pain [None]
  - Victim of abuse [None]
  - Renal pain [None]
  - Protein urine [None]
  - Urine ketone body present [None]
  - Product use in unapproved indication [None]
  - Device use issue [None]
  - Circumstance or information capable of leading to medication error [None]
  - Thrombosis [None]
  - Scar [None]
  - Fungal infection [None]

NARRATIVE: CASE EVENT DATE: 20220804
